FAERS Safety Report 4492962-1 (Version None)
Quarter: 2004Q3

REPORT INFORMATION
  Report Type: 
  Country: None (occurrence: None)
  Receive Date: 20040921
  Receipt Date: 20040311
  Transmission Date: 20050211
  Serious: Yes (Death)
  Sender: FDA-Public Use
  Company Number: 163-20785-04030288 (0)

PATIENT
  Age: 67 Year
  Sex: Female

DRUGS (1)
  1. THALOMID [Suspect]
     Indication: COLON CANCER
     Dosage: 100 MG, Q.H.S., ORAL
     Route: 048
     Dates: start: 20031110, end: 20031203

REACTIONS (2)
  - DEATH [None]
  - DISEASE PROGRESSION [None]
